FAERS Safety Report 18476270 (Version 1)
Quarter: 2020Q4

REPORT INFORMATION
  Report Type: Spontaneous
  Country: US (occurrence: US)
  Receive Date: 20201106
  Receipt Date: 20201106
  Transmission Date: 20210114
  Serious: No
  Sender: FDA-Public Use
  Company Number: US-PFIZER INC-2020244092

PATIENT
  Age: 67 Year
  Sex: Male

DRUGS (3)
  1. EMCYT [Suspect]
     Active Substance: ESTRAMUSTINE PHOSPHATE SODIUM
     Dosage: 2 DF, 3X/DAY [SIG 2 PO TID (THREE TIMES A DAY) X 4/6 WEEKS/DOSAGE: 140MG]
     Route: 048
  2. EMCYT [Suspect]
     Active Substance: ESTRAMUSTINE PHOSPHATE SODIUM
     Indication: PROSTATE CANCER
     Dosage: 140 MG
  3. EMCYT [Suspect]
     Active Substance: ESTRAMUSTINE PHOSPHATE SODIUM
     Dosage: 280 MG, CYCLIC [2 PO TID (THRICE A DAY) X 4/6 WEEKS]
     Route: 048

REACTIONS (1)
  - Neoplasm recurrence [Unknown]
